FAERS Safety Report 7225889 (Version 6)
Quarter: 2013Q2

REPORT INFORMATION
  Report Type: Spontaneous
  Country: US (occurrence: US)
  Receive Date: 20091222
  Receipt Date: 20130409
  Transmission Date: 20140414
  Serious: Yes (Hospitalization)
  Sender: FDA-Public Use
  Company Number: US-BAYER-200942884NA

PATIENT
  Age: 26 Year
  Sex: Female

DRUGS (15)
  1. YASMIN [Suspect]
     Indication: CONTRACEPTION
     Dosage: UNK
     Route: 048
     Dates: start: 20080428, end: 20080818
  2. YASMIN [Suspect]
     Indication: MENSTRUAL CYCLE MANAGEMENT
  3. YAZ [Suspect]
     Indication: CONTRACEPTION
     Dosage: UNK
     Route: 048
     Dates: start: 200804, end: 200808
  4. YAZ [Suspect]
     Indication: MENSTRUAL CYCLE MANAGEMENT
  5. OCELLA [Suspect]
     Indication: CONTRACEPTION
     Dosage: UNK
     Route: 048
     Dates: start: 20080916, end: 20081114
  6. DOXYCYCLIN [Concomitant]
     Dates: start: 200808
  7. DECADRON [Concomitant]
     Dates: start: 200811
  8. OXYCODONE [Concomitant]
     Dates: start: 2006, end: 2008
  9. HYDROCODONE [Concomitant]
     Dates: start: 2004, end: 2009
  10. WARFARIN [Concomitant]
     Dates: start: 200802, end: 2009
  11. TYLENOL WITH CODEIN #2 [Concomitant]
     Dates: start: 200812
  12. CIPRO [Concomitant]
     Dates: start: 200811
  13. DEXAMETHASONE ACETATE [Concomitant]
  14. VICODIN [Concomitant]
     Dosage: UNK
     Dates: start: 20090113
  15. PENICILLIN VK [Concomitant]
     Dosage: 500 MG, UNK
     Route: 048
     Dates: start: 20081117

REACTIONS (7)
  - Pulmonary embolism [Recovered/Resolved]
  - Deep vein thrombosis [None]
  - Deep vein thrombosis [None]
  - Deep vein thrombosis [None]
  - Pain [Recovered/Resolved]
  - Pain in extremity [None]
  - Local swelling [None]
